FAERS Safety Report 9733322 (Version 1)
Quarter: 2013Q4

REPORT INFORMATION
  Report Type: Spontaneous
  Country: US (occurrence: US)
  Receive Date: 20131204
  Receipt Date: 20131204
  Transmission Date: 20140711
  Serious: No
  Sender: FDA-Public Use
  Company Number: US-ENDO PHARMACEUTICALS INC.-APIR20120005

PATIENT
  Sex: Male

DRUGS (2)
  1. ALPRAZOLAM IR TABLETS [Suspect]
     Indication: ANXIETY
     Dosage: UNKNOWN
     Route: 048
     Dates: start: 201204
  2. ALPRAZOLAM IR TABLETS [Suspect]
     Dosage: UNKNOWN
     Route: 048
     Dates: start: 201205

REACTIONS (5)
  - Haematochezia [Unknown]
  - Nausea [Unknown]
  - Irritability [Unknown]
  - Headache [Unknown]
  - Drug ineffective [Not Recovered/Not Resolved]
